FAERS Safety Report 8617429-8 (Version None)
Quarter: 2012Q3

REPORT INFORMATION
  Report Type: 
  Country: None (occurrence: None)
  Receive Date: 20120824
  Receipt Date: 20120820
  Transmission Date: 20120928
  Serious: Yes (Hospitalization, Other)
  Sender: FDA-Public Use
  Company Number: US-009507513-2011SP050148

PATIENT

DRUGS (2)
  1. NUVARING [Suspect]
     Indication: CONTRACEPTION
     Dosage: 1 DF, QM
     Route: 067
     Dates: start: 20080428, end: 20091001
  2. NUVARING [Suspect]
     Indication: MENSTRUAL CYCLE MANAGEMENT

REACTIONS (6)
  - ANXIETY [None]
  - COITAL BLEEDING [None]
  - DYSPAREUNIA [None]
  - FATIGUE [None]
  - RENAL CYST [None]
  - PULMONARY EMBOLISM [None]
